FAERS Safety Report 15020963 (Version 1)
Quarter: 2018Q2

REPORT INFORMATION
  Report Type: Spontaneous
  Country: US (occurrence: US)
  Receive Date: 20180618
  Receipt Date: 20180618
  Transmission Date: 20180711
  Serious: Yes (Hospitalization, Other)
  Sender: FDA-Public Use
  Company Number: US-SUNOVION-2018SUN002390

PATIENT
  Age: 28 Year
  Sex: Female
  Weight: 67.57 kg

DRUGS (2)
  1. LATUDA [Suspect]
     Active Substance: LURASIDONE HYDROCHLORIDE
     Indication: BIPOLAR DISORDER
     Dosage: 40 MG, UNK
     Route: 048
     Dates: start: 20180522, end: 201806
  2. CELEXA [Concomitant]
     Active Substance: CITALOPRAM HYDROBROMIDE
     Dosage: UNK
     Route: 065

REACTIONS (2)
  - Drug dose omission [Unknown]
  - Suicidal ideation [Not Recovered/Not Resolved]

NARRATIVE: CASE EVENT DATE: 201806
